FAERS Safety Report 8963185 (Version 3)
Quarter: 2013Q2

REPORT INFORMATION
  Report Type: Report from Study
  Country: JP (occurrence: JP)
  Receive Date: 20121213
  Receipt Date: 20130627
  Transmission Date: 20140414
  Serious: Yes (Life-Threatening)
  Sender: FDA-Public Use
  Company Number: JP-OTSUKA-JP-2012-17026

PATIENT
  Age: 41 Year
  Sex: Male
  Weight: 63.8 kg

DRUGS (14)
  1. SAMSCA [Suspect]
     Indication: FLUID RETENTION
     Dosage: 7.5 MG MILLIGRAM(S), QAM
     Route: 048
     Dates: start: 20120903, end: 20120915
  2. ALEVIATIN [Suspect]
     Dosage: 200 MG MILLIGRAM(S), DAILY DOSE
     Route: 048
  3. NITOROL [Concomitant]
     Indication: CARDIAC FAILURE
     Dosage: 25 MG MILLIGRAM(S), DAILY DOSE
     Route: 042
     Dates: start: 20120820, end: 20120823
  4. LASIX [Concomitant]
     Indication: CARDIAC FAILURE
     Dosage: 40 MG MILLIGRAM(S), DAILY DOSE
     Route: 042
     Dates: start: 20120820, end: 20120907
  5. DOBUTREX [Concomitant]
     Indication: CARDIAC FAILURE
     Dosage: 100 MG MILLIGRAM(S), DAILY DOSE
     Route: 042
     Dates: start: 20120828, end: 20120905
  6. HANP [Concomitant]
     Indication: CARDIAC FAILURE
     Dosage: 4000 MCG, DAILY DOSE
     Route: 042
     Dates: end: 20120903
  7. PIMOBENDAN [Concomitant]
     Indication: CARDIAC FAILURE
     Dosage: 2.5 MG MILLIGRAM(S), DAILY DOSE
     Route: 048
  8. PREDNISOLONE [Concomitant]
     Dosage: 15 MG MILLIGRAM(S), DAILY DOSE
     Route: 048
  9. MAINTATE [Concomitant]
     Indication: CARDIAC FAILURE
     Dosage: 5 MG MILLIGRAM(S), DAILY DOSE
     Route: 048
  10. ANCARON [Concomitant]
     Indication: CARDIAC FAILURE
     Dosage: 200 MG MILLIGRAM(S), DAILY DOSE
     Route: 048
  11. PRAZAXA [Concomitant]
     Indication: CARDIAC FAILURE
     Dosage: 220 MG MILLIGRAM(S), DAILY DOSE
     Route: 048
  12. ZYLORIC [Concomitant]
     Indication: HYPERURICAEMIA
     Dosage: 200 MG MILLIGRAM(S), DAILY DOSE
     Route: 048
  13. CRESTOR [Concomitant]
     Dosage: 2.5 MG MILLIGRAM(S), DAILY DOSE
     Route: 048
  14. LASIX [Concomitant]
     Indication: CARDIAC FAILURE
     Dosage: 40 MG MILLIGRAM(S), DAILY DOSE
     Route: 048
     Dates: start: 20120907

REACTIONS (1)
  - Hepatitis fulminant [Recovered/Resolved]
